FAERS Safety Report 16509798 (Version 1)
Quarter: 2019Q3

REPORT INFORMATION
  Report Type: Spontaneous
  Country: US (occurrence: US)
  Receive Date: 20190702
  Receipt Date: 20190702
  Transmission Date: 20191004
  Serious: Yes (Other)
  Sender: FDA-Public Use
  Company Number: US-AMGEN-USASP2019103737

PATIENT
  Sex: Male

DRUGS (4)
  1. EPOGEN [Suspect]
     Active Substance: ERYTHROPOIETIN
     Indication: PRODUCT USED FOR UNKNOWN INDICATION
     Dosage: 14000 UNIT
     Route: 065
     Dates: end: 2019
  2. PLAVIX [Concomitant]
     Active Substance: CLOPIDOGREL BISULFATE
     Dosage: UNK
     Dates: start: 2019
  3. EPOGEN [Suspect]
     Active Substance: ERYTHROPOIETIN
     Dosage: 20000 UNIT
     Route: 065
     Dates: start: 201906
  4. ASPIRIN [ACETYLSALICYLIC ACID] [Concomitant]
     Active Substance: ASPIRIN
     Dosage: UNK
     Dates: start: 2019

REACTIONS (3)
  - Blood pressure abnormal [Not Recovered/Not Resolved]
  - Haemoglobin decreased [Unknown]
  - Aortic valve replacement [Unknown]

NARRATIVE: CASE EVENT DATE: 2019
